FAERS Safety Report 4972555-X (Version None)
Quarter: 2006Q2

REPORT INFORMATION
  Report Type: 
  Country: None (occurrence: None)
  Receive Date: 20060413
  Receipt Date: 20050927
  Transmission Date: 20061013
  Serious: Yes (Hospitalization, Other)
  Sender: FDA-Public Use
  Company Number: US-MERCK-0509USA04871

PATIENT
  Age: 60 Year
  Sex: Female
  Weight: 73 kg

DRUGS (19)
  1. VIOXX [Suspect]
     Indication: ARTHRITIS
     Route: 048
     Dates: start: 20000201
  2. VIOXX [Suspect]
     Route: 048
     Dates: start: 20010301, end: 20010501
  3. ASPIRIN [Concomitant]
     Route: 048
  4. LOTENSIN [Concomitant]
     Route: 065
  5. ATENOLOL [Concomitant]
     Route: 065
  6. GLYBURIDE [Concomitant]
     Route: 065
  7. POTASSIUM CHLORIDE [Concomitant]
     Route: 065
  8. ISOSORBIDE MONONITRATE [Concomitant]
     Route: 065
  9. ESTRATEST [Concomitant]
     Route: 065
  10. FUROSEMIDE [Concomitant]
     Route: 065
  11. DIOVAN [Concomitant]
     Route: 065
  12. FERROUS SULFATE [Concomitant]
     Route: 065
  13. LIPITOR [Concomitant]
     Route: 065
  14. PLETAL [Concomitant]
     Route: 065
  15. NORVASC [Concomitant]
     Route: 065
  16. FOSAMAX [Concomitant]
     Route: 065
  17. VENTOLIN [Concomitant]
     Route: 065
  18. VITAMINS (UNSPECIFIED) [Concomitant]
     Route: 065
  19. CELEBREX [Concomitant]
     Route: 065

REACTIONS (36)
  - ABDOMINAL PAIN [None]
  - ACUTE MYOCARDIAL INFARCTION [None]
  - ANAEMIA [None]
  - ANGINA PECTORIS [None]
  - ANGINA UNSTABLE [None]
  - ANXIETY [None]
  - ARTERIOSCLEROSIS [None]
  - BACK PAIN [None]
  - CARDIAC DISORDER [None]
  - CHEST DISCOMFORT [None]
  - CHEST PAIN [None]
  - CHRONIC OBSTRUCTIVE PULMONARY DISEASE [None]
  - CONSTIPATION [None]
  - CORONARY ARTERY DISEASE [None]
  - DEAFNESS [None]
  - DIABETES MELLITUS [None]
  - DIARRHOEA [None]
  - DIZZINESS [None]
  - DYSPEPSIA [None]
  - DYSPNOEA [None]
  - HYPERLIPIDAEMIA [None]
  - HYPERTENSION [None]
  - JOINT SWELLING [None]
  - MEMORY IMPAIRMENT [None]
  - MUSCLE SPASMS [None]
  - MUSCULOSKELETAL CHEST PAIN [None]
  - MUSCULOSKELETAL DISCOMFORT [None]
  - OSTEOPOROSIS [None]
  - OTITIS EXTERNA [None]
  - PALPITATIONS [None]
  - POLLAKIURIA [None]
  - PRURITUS [None]
  - TEMPERATURE INTOLERANCE [None]
  - THROMBOSIS [None]
  - TINNITUS [None]
  - VENTRICULAR HYPERTROPHY [None]
